FAERS Safety Report 22988369 (Version 3)
Quarter: 2023Q4

REPORT INFORMATION
  Report Type: Spontaneous
  Country: US (occurrence: US)
  Receive Date: 20230926
  Receipt Date: 20231211
  Transmission Date: 20240109
  Serious: Yes (Other)
  Sender: FDA-Public Use
  Company Number: US-REGENERON PHARMACEUTICALS, INC.-2023-115959

PATIENT
  Sex: Male

DRUGS (1)
  1. LIBTAYO [Suspect]
     Active Substance: CEMIPLIMAB-RWLC
     Indication: Squamous cell carcinoma
     Dosage: 350 MG, Q3W
     Route: 042
     Dates: end: 20230712

REACTIONS (8)
  - Atrial fibrillation [Unknown]
  - Oropharyngeal pain [Recovered/Resolved]
  - Glossodynia [Recovered/Resolved]
  - Dysphagia [Recovered/Resolved]
  - Muscular weakness [Not Recovered/Not Resolved]
  - Pain in extremity [Not Recovered/Not Resolved]
  - Pain in extremity [Unknown]
  - Drug ineffective [Unknown]

NARRATIVE: CASE EVENT DATE: 20230713
